FAERS Safety Report 4460313-4 (Version None)
Quarter: 2004Q3

REPORT INFORMATION
  Report Type: 
  Country: None (occurrence: None)
  Receive Date: 20040928
  Receipt Date: 20040312
  Transmission Date: 20050211
  Serious: No
  Sender: FDA-Public Use
  Company Number: US-GLAXOSMITHKLINE-A0502593A

PATIENT
  Age: 82 Year
  Sex: Female

DRUGS (1)
  1. SEREVENT [Suspect]
     Indication: WHEEZING
     Dosage: 50MCG TWICE PER DAY
     Route: 055
     Dates: start: 20040115

REACTIONS (2)
  - DRUG INEFFECTIVE [None]
  - PHARMACEUTICAL PRODUCT COMPLAINT [None]
